FAERS Safety Report 5581937-7 (Version None)
Quarter: 2008Q1

REPORT INFORMATION
  Report Type: 
  Country: None (occurrence: None)
  Receive Date: 20080104
  Receipt Date: 20071227
  Transmission Date: 20080703
  Serious: Yes (Other)
  Sender: FDA-Public Use
  Company Number: A0701296A

PATIENT
  Sex: Male

DRUGS (1)
  1. COREG CR [Suspect]
     Indication: DRUG USE FOR UNKNOWN INDICATION

REACTIONS (4)
  - ANGINA PECTORIS [None]
  - DIZZINESS [None]
  - NAUSEA [None]
  - RASH PRURITIC [None]
